FAERS Safety Report 8964168 (Version 1)
Quarter: 2012Q4

REPORT INFORMATION
  Report Type: 
  Country: US (occurrence: US)
  Receive Date: 20121214
  Receipt Date: 20121214
  Transmission Date: 20130627
  Serious: No
  Sender: FDA-Public Use
  Company Number: US-PFIZER INC-2012300299

PATIENT
  Age: 44 Year
  Sex: Male

DRUGS (8)
  1. OXYCODONE HYDROCHLORIDE [Suspect]
     Indication: PAIN
     Dosage: 15 mg, (ORAL EVERY 4 HRS AS NEEDED )
     Route: 048
  2. OXYCODONE HYDROCHLORIDE [Suspect]
     Dosage: 80 mg, 2x/day
     Route: 048
  3. AMBIEN [Suspect]
     Dosage: 12.5 mg, (At bedtime)
     Route: 048
  4. LEXAPRO [Suspect]
     Dosage: 20 mg, daily
     Route: 048
  5. OXYCONTIN [Suspect]
     Dosage: 60 mg, 2x/day
     Route: 048
  6. SOMA [Suspect]
     Dosage: 350 mg, 2x/day
     Route: 048
  7. VALIUM [Suspect]
     Dosage: 10 mg, daily
     Route: 048
  8. XARELTO [Suspect]
     Dosage: 10 mg, daily
     Route: 048

REACTIONS (3)
  - Somnolence [Unknown]
  - Blood pressure fluctuation [Unknown]
  - Heart rate irregular [Unknown]
